FAERS Safety Report 18586629 (Version 2)
Quarter: 2020Q4

REPORT INFORMATION
  Report Type: Spontaneous
  Country: CA (occurrence: CA)
  Receive Date: 20201207
  Receipt Date: 20201215
  Transmission Date: 20210114
  Serious: Yes (Other)
  Sender: FDA-Public Use
  Company Number: CA-B.I. PHARMACEUTICALS,INC./RIDGEFIELD-2020-BI-065834

PATIENT
  Age: 38 Year
  Sex: Male
  Weight: 127 kg

DRUGS (2)
  1. JARDIANCE [Suspect]
     Active Substance: EMPAGLIFLOZIN
     Indication: TYPE 2 DIABETES MELLITUS
     Route: 048
     Dates: start: 20190130, end: 20200220
  2. JARDIANCE [Suspect]
     Active Substance: EMPAGLIFLOZIN
     Route: 048
     Dates: start: 20200220, end: 20201127

REACTIONS (3)
  - Mood altered [Recovering/Resolving]
  - Physical assault [Recovered/Resolved]
  - Suicidal behaviour [Recovered/Resolved]

NARRATIVE: CASE EVENT DATE: 201902
